FAERS Safety Report 7068043-X (Version None)
Quarter: 2010Q4

REPORT INFORMATION
  Report Type: 
  Country: None (occurrence: None)
  Receive Date: 20101027
  Receipt Date: 20101027
  Transmission Date: 20110411
  Serious: No
  Sender: FDA-Public Use
  Company Number: None

PATIENT
  Age: 9 Month
  Sex: Female
  Weight: 9.0719 kg

DRUGS (1)
  1. HYLAND TEETHING TABLETS N/A HYLAND [Suspect]
     Indication: TEETHING
     Dosage: 3 TABLETS 3X DAY PO
     Route: 048
     Dates: start: 20100601, end: 20101024

REACTIONS (3)
  - CONSTIPATION [None]
  - DYSPNOEA [None]
  - PRODUCT QUALITY ISSUE [None]
